FAERS Safety Report 7432667-8 (Version None)
Quarter: 2011Q2

REPORT INFORMATION
  Report Type: 
  Country: None (occurrence: None)
  Receive Date: 20110422
  Receipt Date: 20110415
  Transmission Date: 20111010
  Serious: Yes (Hospitalization)
  Sender: FDA-Public Use
  Company Number: JP-B.I. PHARMACEUTICALS,INC./RIDGEFIELD-2011-BP-05079NB

PATIENT
  Sex: Male

DRUGS (4)
  1. CELECOX [Suspect]
     Indication: BACK PAIN
     Dosage: 200 MG
     Route: 048
     Dates: start: 20080517
  2. BI-SIFROL TABLETS [Suspect]
     Indication: PARKINSON'S DISEASE
     Dosage: 2 MG
     Route: 048
     Dates: start: 20100115, end: 20110225
  3. RISUMIC [Suspect]
     Indication: ORTHOSTATIC HYPOTENSION
     Dosage: 20 MG
     Route: 048
     Dates: start: 20090612
  4. MUCOSTA [Suspect]
     Indication: ABDOMINAL DISCOMFORT
     Dosage: 200 MG
     Route: 048
     Dates: start: 20060908

REACTIONS (5)
  - HEAD INJURY [None]
  - DIZZINESS [None]
  - SUDDEN ONSET OF SLEEP [None]
  - LOSS OF CONSCIOUSNESS [None]
  - FALL [None]
